FAERS Safety Report 7932827-3 (Version None)
Quarter: 2011Q4

REPORT INFORMATION
  Report Type: 
  Country: None (occurrence: None)
  Receive Date: 20111122
  Receipt Date: 20111117
  Transmission Date: 20120403
  Serious: Yes (Other)
  Sender: FDA-Public Use
  Company Number: US-PFIZER INC-2011260073

PATIENT
  Sex: Male
  Weight: 77.098 kg

DRUGS (4)
  1. PHENOBARBITAL [Concomitant]
     Indication: CONVULSION
     Dosage: UNK
  2. DILANTIN [Suspect]
     Indication: CEREBROVASCULAR ARTERIOVENOUS MALFORMATION
     Dosage: 300 MG, 1X/DAY
     Route: 048
     Dates: start: 19910101
  3. DILANTIN [Suspect]
     Indication: CONVULSION PROPHYLAXIS
     Dosage: 100 MG, 2X/DAY
     Route: 048
  4. DILANTIN [Suspect]
     Dosage: UNK
     Route: 048

REACTIONS (5)
  - DRUG LEVEL CHANGED [None]
  - HEAD DISCOMFORT [None]
  - FEELING ABNORMAL [None]
  - DIABETES MELLITUS [None]
  - HEART RATE INCREASED [None]
